FAERS Safety Report 4979002-2 (Version None)
Quarter: 2006Q2

REPORT INFORMATION
  Report Type: 
  Country: None (occurrence: None)
  Receive Date: 20060419
  Receipt Date: 20060419
  Transmission Date: 20061013
  Serious: Yes (Other)
  Sender: FDA-Public Use
  Company Number: None

PATIENT
  Age: 27 Year
  Sex: Female
  Weight: 79.3795 kg

DRUGS (1)
  1. LEVAQUIN [Suspect]
     Indication: KIDNEY INFECTION
     Dosage: 500 MG  1/DAY  PO
     Route: 048
     Dates: start: 20060404, end: 20060408

REACTIONS (5)
  - ANXIETY [None]
  - ARTHRALGIA [None]
  - DEPRESSION [None]
  - INSOMNIA [None]
  - THINKING ABNORMAL [None]
